FAERS Safety Report 6073976-7 (Version None)
Quarter: 2009Q1

REPORT INFORMATION
  Report Type: 
  Country: None (occurrence: None)
  Receive Date: 20090209
  Receipt Date: 20090209
  Transmission Date: 20090719
  Serious: Yes (Other)
  Sender: FDA-Public Use
  Company Number: None

PATIENT
  Age: 45 Year
  Sex: Male
  Weight: 108.8633 kg

DRUGS (3)
  1. CEPHALEXIN [Suspect]
     Indication: SURGERY
     Dosage: 500 MG TAB TID PO
     Route: 048
     Dates: start: 20080530, end: 20080601
  2. VICODIN [Concomitant]
  3. EZETIMIBE [Concomitant]

REACTIONS (2)
  - PRURITUS [None]
  - URTICARIA [None]
